FAERS Safety Report 8510500-0 (Version None)
Quarter: 2012Q3

REPORT INFORMATION
  Report Type: 
  Country: None (occurrence: None)
  Receive Date: 20120716
  Receipt Date: 20120703
  Transmission Date: 20120928
  Serious: Yes (Life-Threatening, Hospitalization, Other)
  Sender: FDA-Public Use
  Company Number: DE-BRISTOL-MYERS SQUIBB COMPANY-16693525

PATIENT
  Age: 66 Year
  Sex: Male
  Weight: 81 kg

DRUGS (2)
  1. YERVOY [Suspect]
     Indication: METASTATIC MALIGNANT MELANOMA
     Dosage: MAR+APR12:3PACK50MG/10ML;8869134;1L63916;EXP:MAY2014+200MG/40ML;8869140;1M47424;EXP:APR2014
     Route: 042
  2. PANTOPRAZOLE [Concomitant]

REACTIONS (5)
  - DIARRHOEA [None]
  - HYPOGLYCAEMIC COMA [None]
  - HYPOKALAEMIA [None]
  - GASTROINTESTINAL HAEMORRHAGE [None]
  - SEPSIS [None]
